FAERS Safety Report 10577304 (Version 2)
Quarter: 2014Q4

REPORT INFORMATION
  Report Type: Report from Study
  Country: JP (occurrence: JP)
  Receive Date: 20141111
  Receipt Date: 20141114
  Transmission Date: 20150529
  Serious: Yes (Death, Other)
  Sender: FDA-Public Use
  Company Number: JP-CELGENE-JPN-2014105640

PATIENT
  Age: 77 Year
  Sex: Female
  Weight: 34.2 kg

DRUGS (14)
  1. ROMIDEPSIN [Suspect]
     Active Substance: ROMIDEPSIN
     Route: 041
     Dates: start: 20140820, end: 20141015
  2. TAKELDA [Concomitant]
     Dosage: 1 DOSAGE FORMS
     Route: 048
  3. LASIX [Concomitant]
     Active Substance: FUROSEMIDE
     Dosage: .5 DOSAGE FORMS
     Route: 048
  4. CALONAL [Concomitant]
     Active Substance: ACETAMINOPHEN
     Route: 048
  5. BIOFERMIN [Concomitant]
     Active Substance: BACILLUS SUBTILIS\LACTOBACILLUS ACIDOPHILUS\STREPTOCOCCUS FAECAIS
     Dosage: 1 DOSAGE FORMS
     Route: 048
     Dates: start: 20140821
  6. AUGMENTIN [Concomitant]
     Active Substance: AMOXICILLIN\CLAVULANATE POTASSIUM
     Dosage: 3 DOSAGE FORMS
     Route: 048
     Dates: start: 20140903
  7. LIVALO [Concomitant]
     Active Substance: PITAVASTATIN CALCIUM
     Route: 048
  8. PREDNISOLONE. [Concomitant]
     Active Substance: PREDNISOLONE
     Route: 065
     Dates: start: 20141105
  9. BAKTAR [Concomitant]
     Active Substance: SULFAMETHOXAZOLE\TRIMETHOPRIM
     Route: 048
  10. ACICLOVIR [Concomitant]
     Active Substance: ACYCLOVIR
     Dosage: 1 DOSAGE FORMS
     Route: 048
  11. ARTIST [Concomitant]
     Active Substance: CARVEDILOL
     Dosage: 1 DOSAGE FORMS
     Route: 048
  12. PLAVIX [Concomitant]
     Active Substance: CLOPIDOGREL BISULFATE
     Dosage: 1 DOSAGE FORMS
     Route: 048
  13. FEBURIC [Concomitant]
     Active Substance: FEBUXOSTAT
     Dosage: .5 DOSAGE FORMS
     Route: 048
     Dates: start: 20140821
  14. CARBOCISTEINE [Concomitant]
     Active Substance: CARBOCYSTEINE
     Dosage: 1 DOSAGE FORMS
     Route: 048
     Dates: start: 20140829

REACTIONS (1)
  - Diffuse large B-cell lymphoma [Fatal]

NARRATIVE: CASE EVENT DATE: 20141020
